FAERS Safety Report 8785015 (Version 1)
Quarter: 2012Q4

REPORT INFORMATION
  Report Type: Spontaneous
  Country: US (occurrence: None)
  Receive Date: 20120829
  Receipt Date: 20120829
  Transmission Date: 20130627
  Serious: Yes (Other)
  Sender: FDA-Public Use
  Company Number: 2012SA059357

PATIENT
  Age: 35 Year
  Sex: Male

DRUGS (1)
  1. ASPERCREME MAX NO MESS ROLL ON [Suspect]
     Route: 061
     Dates: start: 20120815

REACTIONS (3)
  - Skin irritation [None]
  - Burning sensation [None]
  - Thermal burn [None]
